FAERS Safety Report 9422735 (Version 1)
Quarter: 2013Q3

REPORT INFORMATION
  Report Type: Spontaneous
  Country: US (occurrence: US)
  Receive Date: 20130726
  Receipt Date: 20130726
  Transmission Date: 20140515
  Serious: No
  Sender: FDA-Public Use
  Company Number: US-MYLANLABS-2012S1021122

PATIENT
  Age: 70 Year
  Sex: Female
  Weight: 68.04 kg

DRUGS (5)
  1. TRAMADOL HYDROCHLORIDE TABLETS [Suspect]
     Indication: BACK PAIN
     Route: 048
     Dates: start: 20120929, end: 20120929
  2. TRAMADOL HYDROCHLORIDE TABLETS [Suspect]
     Indication: BACK PAIN
     Route: 048
     Dates: start: 20121002, end: 20121003
  3. DIOVAN [Concomitant]
     Indication: BLOOD PRESSURE INCREASED
  4. VITAMIN D [Concomitant]
     Indication: OSTEOPOROSIS
  5. CALCIUM [Concomitant]
     Indication: OSTEOPOROSIS

REACTIONS (8)
  - Disorientation [Recovering/Resolving]
  - Dizziness [Recovering/Resolving]
  - Somnolence [Recovering/Resolving]
  - Headache [Recovered/Resolved]
  - Gait disturbance [Recovering/Resolving]
  - Pain in extremity [Recovering/Resolving]
  - Hypoaesthesia [Recovering/Resolving]
  - Micturition disorder [Recovered/Resolved]
